FAERS Safety Report 10567544 (Version 2)
Quarter: 2015Q1

REPORT INFORMATION
  Report Type: Spontaneous
  Country: US (occurrence: US)
  Receive Date: 20141106
  Receipt Date: 20150115
  Transmission Date: 20150720
  Serious: No
  Sender: FDA-Public Use
  Company Number: US-BIOGENIDEC-2014BI115489

PATIENT
  Sex: Female

DRUGS (1)
  1. TYSABRI [Suspect]
     Active Substance: NATALIZUMAB
     Indication: MULTIPLE SCLEROSIS
     Route: 042
     Dates: start: 20120612, end: 20140930

REACTIONS (1)
  - Drug ineffective [Not Recovered/Not Resolved]
